FAERS Safety Report 7973213-X (Version None)
Quarter: 2011Q4

REPORT INFORMATION
  Report Type: 
  Country: None (occurrence: None)
  Receive Date: 20111213
  Receipt Date: 20111206
  Transmission Date: 20120403
  Serious: Yes (Hospitalization)
  Sender: FDA-Public Use
  Company Number: US-UCBSA-011414

PATIENT
  Age: 48 Year
  Sex: Female
  Weight: 73 kg

DRUGS (11)
  1. METHOTREXATE [Concomitant]
     Indication: CROHN'S DISEASE
     Dates: start: 20020101, end: 20020101
  2. METHOTREXATE [Concomitant]
     Dates: start: 20090501
  3. IBUPROFEN [Concomitant]
     Indication: CROHN'S DISEASE
  4. LOPERAMIDE HCL [Concomitant]
     Indication: CROHN'S DISEASE
  5. ALBUTEROL [Concomitant]
     Dosage: 90 MCG/ACT 2 PUFFS PRN
     Dates: start: 20100101
  6. AMITRIPTYLINE HCL [Concomitant]
     Indication: DEPRESSION
     Route: 048
     Dates: start: 20090101
  7. CIMZIA [Suspect]
     Indication: CROHN'S DISEASE
     Route: 058
     Dates: start: 20091123
  8. ACETAMINOPHEN [Concomitant]
     Indication: PAIN
     Route: 048
  9. METHOTREXATE [Concomitant]
     Dates: start: 20080703, end: 20090304
  10. PREDNISONE TAB [Concomitant]
     Indication: CROHN'S DISEASE
     Dates: start: 19920201, end: 20100401
  11. METHOTREXATE [Concomitant]
     Dates: start: 20071001, end: 20080101

REACTIONS (1)
  - STAPHYLOCOCCAL INFECTION [None]
